FAERS Safety Report 12263815 (Version 3)
Quarter: 2016Q3

REPORT INFORMATION
  Report Type: Spontaneous
  Country: US (occurrence: US)
  Receive Date: 20160413
  Receipt Date: 20160822
  Transmission Date: 20161109
  Serious: No
  Sender: FDA-Public Use
  Company Number: US-JNJFOC-20160223173

PATIENT

DRUGS (2)
  1. CORTICOSTEROID NOS [Suspect]
     Active Substance: CORTICOSTEROID NOS
     Indication: PRODUCT USED FOR UNKNOWN INDICATION
  2. DARZALEX [Suspect]
     Active Substance: DARATUMUMAB
     Indication: PLASMA CELL MYELOMA
     Route: 042

REACTIONS (5)
  - Product preparation error [Unknown]
  - Blood glucose abnormal [Unknown]
  - Product container issue [Unknown]
  - Adverse drug reaction [Unknown]
  - Adverse event [Unknown]
